FAERS Safety Report 6139626-6 (Version None)
Quarter: 2009Q1

REPORT INFORMATION
  Report Type: 
  Country: None (occurrence: None)
  Receive Date: 20090330
  Receipt Date: 20080507
  Transmission Date: 20090719
  Serious: Yes (Other)
  Sender: FDA-Public Use
  Company Number: 171267USA

PATIENT
  Sex: Female

DRUGS (1)
  1. AMOXICILLIN [Suspect]
     Dosage: (400 MG), ORAL
     Route: 048
     Dates: start: 20080501, end: 20080501

REACTIONS (6)
  - DRUG HYPERSENSITIVITY [None]
  - DYSPNOEA [None]
  - EYE SWELLING [None]
  - GENERALISED ERYTHEMA [None]
  - PHARYNGEAL OEDEMA [None]
  - URTICARIA [None]
